FAERS Safety Report 4626656-6 (Version None)
Quarter: 2005Q1

REPORT INFORMATION
  Report Type: 
  Country: None (occurrence: None)
  Receive Date: 20050330
  Receipt Date: 20050323
  Transmission Date: 20050727
  Serious: Yes (Death)
  Sender: FDA-Public Use
  Company Number: 2005US000389

PATIENT
  Age: 31 Year
  Sex: Male

DRUGS (1)
  1. TACROLIMUS CAP(TACROLIMUS) CAPSULE [Suspect]
     Indication: PROPHYLAXIS AGAINST TRANSPLANT REJECTION
     Dosage: 3.00 MG, BID, ORAL
     Route: 048
     Dates: start: 20031031

REACTIONS (1)
  - DEATH [None]
